FAERS Safety Report 8235391 (Version 5)
Quarter: 2014Q2

REPORT INFORMATION
  Report Type: Spontaneous
  Country: US (occurrence: US)
  Receive Date: 20111108
  Receipt Date: 20140429
  Transmission Date: 20141212
  Serious: Yes (Congenital Anomaly, Other)
  Sender: FDA-Public Use
  Company Number: US-PFIZER INC-2011270396

PATIENT
  Sex: Female

DRUGS (12)
  1. ZOLOFT [Suspect]
     Dosage: 100 MG, 1X/DAY (EVERY MORNING)
     Route: 064
     Dates: start: 20040908
  2. ZOLOFT [Suspect]
     Dosage: UNK
     Route: 064
     Dates: start: 200511, end: 200609
  3. TRILEPTAL [Concomitant]
     Dosage: 600 MG, 2X/DAY
     Route: 064
     Dates: start: 20060117
  4. TRILEPTAL [Concomitant]
     Dosage: 300 MG, 2X/DAY
     Route: 064
     Dates: start: 20060606
  5. AVIANE [Concomitant]
     Dosage: UNK
     Route: 064
     Dates: start: 20060213
  6. ZOVIA [Concomitant]
     Dosage: 1/50 ONCE DAILY
     Route: 064
     Dates: start: 20060221
  7. PENICILLIN VK [Concomitant]
     Dosage: 500 MG, 4X/DAY
     Route: 064
     Dates: start: 20060409
  8. FOLIC ACID [Concomitant]
     Dosage: 1 MG, 1X/DAY
     Route: 064
     Dates: start: 20060224
  9. OMNICEF [Concomitant]
     Dosage: 300 MG, DAILY
     Route: 064
     Dates: start: 20060502
  10. EPIPEN [Concomitant]
     Dosage: 0.3 MG, UNK
     Route: 064
     Dates: start: 20060524
  11. PROMETHAZINE [Concomitant]
     Dosage: 25 MG, EVERY 6 HOURS
     Route: 064
     Dates: start: 20060718
  12. PRENATAL VITAMINS [Concomitant]
     Dosage: UNK
     Route: 064

REACTIONS (5)
  - Maternal exposure during pregnancy [Unknown]
  - Pulmonary valve stenosis congenital [Unknown]
  - Heart disease congenital [Unknown]
  - Atrial septal defect [Unknown]
  - Premature baby [Unknown]
